FAERS Safety Report 5545354-8 (Version None)
Quarter: 2007Q4

REPORT INFORMATION
  Report Type: 
  Country: None (occurrence: None)
  Receive Date: 20071206
  Receipt Date: 20071206
  Transmission Date: 20080405
  Serious: No
  Sender: FDA-Public Use
  Company Number: None

PATIENT

DRUGS (1)
  1. DIPROFOL 2% [Suspect]

REACTIONS (3)
  - CHILLS [None]
  - PAIN [None]
  - PYREXIA [None]
